FAERS Safety Report 5221507-3 (Version None)
Quarter: 2007Q1

REPORT INFORMATION
  Report Type: 
  Country: None (occurrence: None)
  Receive Date: 20070126
  Receipt Date: 20070116
  Transmission Date: 20070707
  Serious: Yes (Other)
  Sender: FDA-Public Use
  Company Number: AU-PFIZER INC-2007005400

PATIENT
  Age: 19 Year
  Sex: Male

DRUGS (2)
  1. PYRALIN [Suspect]
     Indication: CROHN'S DISEASE
     Route: 048
  2. PROMETHAZINE HCL [Concomitant]

REACTIONS (2)
  - ALCOHOL POISONING [None]
  - BLOOD ALCOHOL INCREASED [None]
